FAERS Safety Report 6546366-8 (Version None)
Quarter: 2010Q1

REPORT INFORMATION
  Report Type: 
  Country: None (occurrence: None)
  Receive Date: 20100122
  Receipt Date: 20091105
  Transmission Date: 20100710
  Serious: Yes (Death)
  Sender: FDA-Public Use
  Company Number: US-SANOFI-AVENTIS-A03200905040

PATIENT
  Age: 66 Year
  Sex: Male

DRUGS (4)
  1. MULTAQ [Suspect]
     Route: 048
     Dates: start: 20091001
  2. BETA BLOCKING AGENTS [Concomitant]
     Indication: DRUG USE FOR UNKNOWN INDICATION
     Dosage: UNK
     Route: 065
  3. DIURETICS [Concomitant]
     Dosage: UNK
     Route: 065
  4. ALL OTHER THERAPEUTIC PRODUCTS [Concomitant]

REACTIONS (2)
  - ARRHYTHMIA [None]
  - CARDIAC ARREST [None]
